FAERS Safety Report 7432712-X (Version None)
Quarter: 2011Q2

REPORT INFORMATION
  Report Type: 
  Country: None (occurrence: None)
  Receive Date: 20110422
  Receipt Date: 20100721
  Transmission Date: 20111010
  Serious: Yes (Hospitalization, Disabling, Other)
  Sender: FDA-Public Use
  Company Number: A0871688A

PATIENT
  Age: 2 Year
  Sex: Female

DRUGS (1)
  1. LAMICTAL [Suspect]
     Indication: BIPOLAR DISORDER
     Dosage: 200MG UNKNOWN
     Route: 064
     Dates: start: 20071017

REACTIONS (3)
  - MEDICAL DEVICE IMPLANTATION [None]
  - SPEECH DISORDER DEVELOPMENTAL [None]
  - DRUG EXPOSURE DURING PREGNANCY [None]
